FAERS Safety Report 5449832-1 (Version None)
Quarter: 2007Q3

REPORT INFORMATION
  Report Type: 
  Country: None (occurrence: None)
  Receive Date: 20070830
  Receipt Date: 20070816
  Transmission Date: 20080115
  Serious: Yes (Hospitalization)
  Sender: FDA-Public Use
  Company Number: THYM-11511

PATIENT
  Age: 14 Year
  Sex: Female

DRUGS (9)
  1. THYMOGLOBULIN [Suspect]
     Indication: ALLOGENIC BONE MARROW TRANSPLANTATION THERAPY
     Dosage: 2.5 MG/KG QD IV
     Route: 042
     Dates: start: 20070706, end: 20070706
  2. ETOPOPHOS [Concomitant]
  3. SOLU-MEDROL [Concomitant]
  4. POLARAMINE [Concomitant]
  5. PERFALGAN [Concomitant]
  6. BACTRIM [Concomitant]
  7. ZOFRAN [Concomitant]
  8. ZANTAC [Concomitant]
  9. WHOLE BODY IRRADIATION [Concomitant]

REACTIONS (1)
  - RENAL FAILURE ACUTE [None]
